FAERS Safety Report 6610990-4 (Version None)
Quarter: 2010Q1

REPORT INFORMATION
  Report Type: 
  Country: None (occurrence: None)
  Receive Date: 20100302
  Receipt Date: 20100218
  Transmission Date: 20100710
  Serious: Yes (Other)
  Sender: FDA-Public Use
  Company Number: FR-BRISTOL-MYERS SQUIBB COMPANY-14986384

PATIENT
  Age: 8 Decade
  Sex: Female

DRUGS (1)
  1. SPRYCEL [Suspect]
     Indication: CHRONIC MYELOID LEUKAEMIA
     Dosage: DOSE REDUCED TO 50MG PER DAY.
     Route: 048

REACTIONS (4)
  - CHOLECYSTITIS [None]
  - HYPOTHYROIDISM [None]
  - PLEURAL EFFUSION [None]
  - PROTEINURIA [None]
